FAERS Safety Report 9252860 (Version 2)
Quarter: 2013Q3

REPORT INFORMATION
  Report Type: Spontaneous
  Country: JP (occurrence: JP)
  Receive Date: 20130424
  Receipt Date: 20130715
  Transmission Date: 20140515
  Serious: Yes (Other)
  Sender: FDA-Public Use
  Company Number: JP-BRISTOL-MYERS SQUIBB COMPANY-18817445

PATIENT
  Age: 60 Year
  Sex: Male
  Weight: 54 kg

DRUGS (11)
  1. ERBITUX SOLN FOR INF 5MG/ML [Suspect]
     Indication: HYPOPHARYNGEAL CANCER
     Dosage: ONG?30APR13-LAST RECEIVED DATE?400MG-2HR INFUSION
     Route: 041
     Dates: start: 20130313
  2. DEXART [Concomitant]
     Indication: PREMEDICATION
     Route: 041
     Dates: start: 20130313
  3. POLARAMINE [Concomitant]
     Indication: PREMEDICATION
     Route: 041
     Dates: start: 20130313
  4. CANDESARTAN [Concomitant]
     Indication: HYPERTENSION
     Route: 048
  5. CRESTOR [Concomitant]
     Indication: PROPHYLAXIS
     Dosage: TABLET
     Route: 048
  6. RANITAC [Concomitant]
     Indication: PROPHYLAXIS
     Dosage: TABLET
     Route: 048
  7. PIRENZEPINE HCL [Concomitant]
     Indication: PROPHYLAXIS
     Route: 048
  8. PROLMON [Concomitant]
     Indication: PROPHYLAXIS
     Dosage: TABLET
     Route: 048
  9. MARZULENE-S [Concomitant]
     Indication: PROPHYLAXIS
     Route: 048
  10. EXCELASE [Concomitant]
     Indication: PROPHYLAXIS
     Route: 048
  11. MIYA-BM [Concomitant]
     Indication: PROPHYLAXIS
     Route: 048

REACTIONS (1)
  - Hepatic function abnormal [Recovering/Resolving]
